FAERS Safety Report 11656267 (Version 1)
Quarter: 2015Q4

REPORT INFORMATION
  Report Type: Spontaneous
  Country: US (occurrence: None)
  Receive Date: 20151023
  Receipt Date: 20151023
  Transmission Date: 20160304
  Serious: Yes (Other)
  Sender: FDA-Public Use
  Company Number: US-MDT-ADR-2015-02007

PATIENT
  Age: 5 Year
  Sex: Male
  Weight: 15 kg

DRUGS (1)
  1. BACLOFEN INTRATHECAL [Suspect]
     Active Substance: BACLOFEN
     Indication: MUSCLE SPASTICITY
     Dosage: 53 MCG/DAY

REACTIONS (3)
  - Incision site swelling [None]
  - Medical device site erosion [None]
  - Medical device site pustule [None]
